FAERS Safety Report 25223148 (Version 1)
Quarter: 2025Q2

REPORT INFORMATION
  Report Type: Spontaneous
  Country: ES (occurrence: ES)
  Receive Date: 20250422
  Receipt Date: 20250422
  Transmission Date: 20250717
  Serious: Yes (Death, Other)
  Sender: AMGEN
  Company Number: ES-AMGEN-ESPSP2025077228

PATIENT

DRUGS (1)
  1. BLINATUMOMAB [Suspect]
     Active Substance: BLINATUMOMAB
     Indication: B-cell type acute leukaemia
     Route: 065

REACTIONS (5)
  - Acute lymphocytic leukaemia refractory [Fatal]
  - Transplant failure [Fatal]
  - Cytokine release syndrome [Fatal]
  - Acute lymphocytic leukaemia recurrent [Unknown]
  - Myelodysplastic syndrome [Unknown]
